FAERS Safety Report 24718802 (Version 6)
Quarter: 2025Q1

REPORT INFORMATION
  Report Type: Spontaneous
  Country: US (occurrence: US)
  Receive Date: 20241210
  Receipt Date: 20250325
  Transmission Date: 20250409
  Serious: Yes (Other)
  Sender: PFIZER
  Company Number: US-PFIZER INC-PV202400159160

PATIENT
  Age: 57 Year
  Sex: Female
  Weight: 54.422 kg

DRUGS (4)
  1. ESTRING [Suspect]
     Active Substance: ESTRADIOL
     Indication: Atrophy
     Dosage: 1 MG/90 DAYS
     Route: 067
     Dates: start: 20241114, end: 20241203
  2. ESTRADIOL [Concomitant]
     Active Substance: ESTRADIOL
     Indication: Atrophy
     Dosage: UNK (.5), 2X/WEEK
  3. LISINOPRIL [Concomitant]
     Active Substance: LISINOPRIL
     Indication: Blood pressure abnormal
     Dosage: 10 MG, DAILY
  4. RECLAST [Concomitant]
     Active Substance: ZOLEDRONIC ACID
     Indication: Osteoporosis

REACTIONS (1)
  - Vaginal ulceration [Recovered/Resolved]

NARRATIVE: CASE EVENT DATE: 20241119
